FAERS Safety Report 7488705-X (Version None)
Quarter: 2011Q2

REPORT INFORMATION
  Report Type: 
  Country: None (occurrence: None)
  Receive Date: 20110518
  Receipt Date: 20110510
  Transmission Date: 20111010
  Serious: Yes (Other)
  Sender: FDA-Public Use
  Company Number: B0719896A

PATIENT
  Age: 65 Year
  Sex: Male

DRUGS (4)
  1. ENOXAPARIN SODIUM [Suspect]
     Dosage: 1ML PER DAY
     Route: 058
  2. ARIXTRA [Suspect]
     Dosage: 3MG PER DAY
     Route: 058
  3. CLOPIDOGREL [Suspect]
     Dosage: 75MG PER DAY
     Route: 048
  4. ASPIRIN [Suspect]
     Dosage: 150MG PER DAY
     Route: 048

REACTIONS (3)
  - HAEMOPTYSIS [None]
  - HAEMATEMESIS [None]
  - HAEMATURIA [None]
